FAERS Safety Report 4309239-7 (Version None)
Quarter: 2004Q1

REPORT INFORMATION
  Report Type: 
  Country: None (occurrence: None)
  Receive Date: 20040227
  Receipt Date: 20040217
  Transmission Date: 20041129
  Serious: Yes (Hospitalization)
  Sender: FDA-Public Use
  Company Number: 04P-167-0250767-00

PATIENT
  Age: 70 Year
  Sex: Male

DRUGS (4)
  1. ISOPTIN [Suspect]
     Indication: ATRIAL FIBRILLATION
     Dosage: 120 MG, 1 IN 1 D, PER ORAL
     Route: 048
  2. INSULN [Concomitant]
  3. ISOSORBIDE ATORVASTATIN [Concomitant]
  4. LANSOPRAZOLE [Concomitant]

REACTIONS (2)
  - BRADYCARDIA [None]
  - CIRCULATORY COLLAPSE [None]
